FAERS Safety Report 5023944-9 (Version None)
Quarter: 2006Q2

REPORT INFORMATION
  Report Type: 
  Country: None (occurrence: None)
  Receive Date: 20060607
  Receipt Date: 20060524
  Transmission Date: 20061013
  Serious: No
  Sender: FDA-Public Use
  Company Number: T200600572

PATIENT
  Age: 52 Year
  Sex: Female
  Weight: 62.6 kg

DRUGS (4)
  1. TOFRANIL PM (IMIPRAMINE PAMOATE) TABLET, 150MG [Suspect]
     Indication: SLEEP DISORDER
     Dosage: SEE IMAGE, ORAL
     Route: 048
     Dates: start: 19910101, end: 20040901
  2. TOFRANIL PM (IMIPRAMINE PAMOATE) TABLET, 150MG [Suspect]
     Indication: SLEEP DISORDER
     Dosage: SEE IMAGE, ORAL
     Route: 048
     Dates: start: 20040901, end: 20060330
  3. TOFRANIL PM (IMIPRAMINE PAMOATE) TABLET, 150MG [Suspect]
     Indication: SLEEP DISORDER
     Dosage: SEE IMAGE, ORAL
     Route: 048
     Dates: start: 20060331, end: 20060501
  4. CALTRATE +D (VITAMIN D NOS, CALCIUM CARBONATE) [Concomitant]

REACTIONS (2)
  - DIABETES MELLITUS [None]
  - NEUROPATHY PERIPHERAL [None]
